FAERS Safety Report 4610656-6 (Version None)
Quarter: 2005Q2

REPORT INFORMATION
  Report Type: 
  Country: None (occurrence: None)
  Receive Date: 20050228
  Receipt Date: 20050121
  Transmission Date: 20051028
  Serious: No
  Sender: FDA-Public Use
  Company Number: S05-USA-00326-01

PATIENT
  Age: 45 Year
  Sex: Male

DRUGS (3)
  1. CAMPRAL [Suspect]
     Indication: ALCOHOLISM
     Dosage: 666 MG TID PO
     Route: 048
     Dates: start: 20050115, end: 20050120
  2. CAMPRAL [Suspect]
     Indication: ALCOHOLISM
     Dosage: 333 MG TID PO
     Route: 048
     Dates: start: 20050121
  3. PROZAC [Concomitant]

REACTIONS (3)
  - ANXIETY [None]
  - DEPRESSION [None]
  - DIARRHOEA [None]
